FAERS Safety Report 10854082 (Version 1)
Quarter: 2015Q1

REPORT INFORMATION
  Report Type: Spontaneous
  Country: TR (occurrence: None)
  Receive Date: 20150218
  Receipt Date: 20150218
  Transmission Date: 20150721
  Serious: Yes (Hospitalization)
  Sender: FDA-Public Use
  Company Number: NSR_01835_2015

PATIENT
  Age: 28 Year
  Sex: Male

DRUGS (1)
  1. TRAMADOL (TRAMADOL) [Suspect]
     Active Substance: TRAMADOL
     Indication: PAIN

REACTIONS (5)
  - Mania [None]
  - Hypomania [None]
  - Procedural pain [None]
  - Sedation [None]
  - Pneumothorax spontaneous [None]
